FAERS Safety Report 21128940 (Version 1)
Quarter: 2022Q3

REPORT INFORMATION
  Report Type: Other
  Country: IN (occurrence: IN)
  Receive Date: 20220725
  Receipt Date: 20220725
  Transmission Date: 20221027
  Serious: Yes (Death, Life-Threatening, Hospitalization, Other)
  Sender: FDA-Public Use
  Company Number: IN-BoehringerIngelheim-2022-BI-182692

PATIENT
  Age: 34 Year
  Sex: Female
  Weight: 70 kg

DRUGS (2)
  1. ALTEPLASE [Suspect]
     Active Substance: ALTEPLASE
     Indication: Basilar artery thrombosis
     Route: 042
  2. HEPARIN [Suspect]
     Active Substance: HEPARIN SODIUM
     Indication: Product used for unknown indication
     Dosage: 500 UNITS/HOUR
     Route: 065

REACTIONS (10)
  - Death [Fatal]
  - Coma scale abnormal [Unknown]
  - Loss of consciousness [Unknown]
  - Thrombosis [Unknown]
  - Cerebral infarction [Unknown]
  - Epistaxis [Unknown]
  - Heparin-induced thrombocytopenia [Unknown]
  - Neurological decompensation [Unknown]
  - General physical health deterioration [Unknown]
  - Haemorrhagic transformation stroke [Unknown]
